FAERS Safety Report 5026747-4 (Version None)
Quarter: 2006Q2

REPORT INFORMATION
  Report Type: 
  Country: None (occurrence: None)
  Receive Date: 20060615
  Receipt Date: 20060608
  Transmission Date: 20061013
  Serious: Yes (Hospitalization)
  Sender: FDA-Public Use
  Company Number: JP-MERCK-0606USA02209

PATIENT
  Age: 70 Year
  Sex: Female

DRUGS (3)
  1. SINGULAIR [Suspect]
     Indication: ASTHMA
     Route: 048
  2. ZYRTEC [Concomitant]
     Route: 048
  3. PULMICORT [Concomitant]
     Route: 055

REACTIONS (1)
  - STEVENS-JOHNSON SYNDROME [None]
